FAERS Safety Report 6652826-1 (Version None)
Quarter: 2010Q1

REPORT INFORMATION
  Report Type: 
  Country: None (occurrence: None)
  Receive Date: 20100326
  Receipt Date: 20100322
  Transmission Date: 20100710
  Serious: Yes (Death, Hospitalization)
  Sender: FDA-Public Use
  Company Number: US-CELGENEUS-163-20785-09122482

PATIENT
  Sex: Female

DRUGS (3)
  1. THALOMID [Suspect]
     Indication: MULTIPLE MYELOMA
     Route: 048
     Dates: start: 20090831, end: 20090922
  2. FLEXERIL [Concomitant]
     Route: 065
     Dates: start: 20090904
  3. BACLOFEN [Concomitant]
     Route: 065
     Dates: start: 20090904

REACTIONS (6)
  - ASTHENIA [None]
  - BACK PAIN [None]
  - BACTERAEMIA [None]
  - DIARRHOEA [None]
  - MULTIPLE MYELOMA [None]
  - RENAL FAILURE CHRONIC [None]
